FAERS Safety Report 8967795 (Version 3)
Quarter: 2013Q2

REPORT INFORMATION
  Report Type: Spontaneous
  Country: US (occurrence: US)
  Receive Date: 20121217
  Receipt Date: 20130508
  Transmission Date: 20140414
  Serious: Yes (Hospitalization, Other)
  Sender: FDA-Public Use
  Company Number: US-009507513-1212USA005205

PATIENT
  Sex: Female
  Weight: 99.32 kg

DRUGS (4)
  1. FOSAMAX [Suspect]
     Indication: OSTEOPOROSIS
     Dosage: 70 MG, QW
     Route: 048
     Dates: start: 20091018, end: 20110116
  2. FOSAMAX PLUS D [Suspect]
     Indication: OSTEOPOROSIS
     Dosage: UNK
     Route: 048
     Dates: end: 2011
  3. FOSAMAX [Suspect]
     Indication: OSTEOPOROSIS
     Dosage: UNK
     Route: 048
     Dates: end: 2011
  4. ALENDRONATE SODIUM [Suspect]

REACTIONS (17)
  - Femur fracture [Unknown]
  - Intramedullary rod insertion [Unknown]
  - Knee arthroplasty [Unknown]
  - Knee arthroplasty [Unknown]
  - Oophorectomy bilateral [Unknown]
  - Body height decreased [Unknown]
  - Osteopenia [Unknown]
  - Hypothyroidism [Unknown]
  - Arthritis [Unknown]
  - Hypertension [Unknown]
  - Deep vein thrombosis [Unknown]
  - Hysterectomy [Unknown]
  - Carpal tunnel decompression [Unknown]
  - Tonsillectomy [Unknown]
  - Neuropathy peripheral [Unknown]
  - Hypertonic bladder [Unknown]
  - Onychomycosis [Unknown]
